FAERS Safety Report 4939875-6 (Version None)
Quarter: 2006Q1

REPORT INFORMATION
  Report Type: 
  Country: None (occurrence: None)
  Receive Date: 20060310
  Receipt Date: 20060203
  Transmission Date: 20060701
  Serious: Yes (Hospitalization)
  Sender: FDA-Public Use
  Company Number: DK-AVENTIS-200611186GDDC

PATIENT
  Age: 38 Year
  Sex: Male

DRUGS (3)
  1. LANTUS [Suspect]
     Indication: DIABETES MELLITUS
     Dosage: DOSE UNIT: UNITS
     Route: 058
     Dates: start: 20060116
  2. AUTOPEN INSULIN INJECTION PEN [Suspect]
  3. CORODIL [Concomitant]

REACTIONS (1)
  - DIABETIC KETOACIDOSIS [None]
